FAERS Safety Report 25897800 (Version 1)
Quarter: 2025Q4

REPORT INFORMATION
  Report Type: Spontaneous
  Country: EU (occurrence: EU)
  Receive Date: 20251008
  Receipt Date: 20251008
  Transmission Date: 20260118
  Serious: Yes (Other)
  Sender: INCYTE
  Company Number: EU-INCYTE CORPORATION-2025IN010844

PATIENT
  Age: 91 Year

DRUGS (1)
  1. TAFASITAMAB [Suspect]
     Active Substance: TAFASITAMAB
     Indication: Diffuse large B-cell lymphoma
     Dosage: UNK

REACTIONS (1)
  - Diffuse large B-cell lymphoma recurrent [Unknown]
